FAERS Safety Report 21044352 (Version 2)
Quarter: 2022Q3

REPORT INFORMATION
  Report Type: Spontaneous
  Country: US (occurrence: US)
  Receive Date: 20220705
  Receipt Date: 20220907
  Transmission Date: 20221026
  Serious: Yes (Hospitalization, Congenital Anomaly)
  Sender: FDA-Public Use
  Company Number: US-NOVARTISPH-NVSC2022US150709

PATIENT
  Sex: Female
  Weight: 2.719 kg

DRUGS (4)
  1. CEFTRIAXONE [Suspect]
     Active Substance: CEFTRIAXONE
     Indication: Foetal exposure during pregnancy
     Dosage: MATERNAL EXPOSURE DURING PREGNANCY: 1G, Q24H
     Route: 064
  2. AZITHROMYCIN [Suspect]
     Active Substance: AZITHROMYCIN
     Indication: Foetal exposure during pregnancy
     Dosage: MATERNAL EXPOSURE DURING PREGNANCY: 1 G
     Route: 064
  3. PENICILLIN G BENZATHINE [Suspect]
     Active Substance: PENICILLIN G BENZATHINE
     Indication: Foetal exposure during pregnancy
     Dosage: MATERNAL EXPOSURE DURING PREGNANCY: 2.4 MILLION UNITS (MU) ONCE A WEEK FOR 3 WEEKS
     Route: 064
  4. CEPHALEXIN [Suspect]
     Active Substance: CEPHALEXIN
     Indication: Foetal exposure during pregnancy
     Dosage: MATERNAL EXPOSURE DURING PREGNANCY: 400 MG, QID FOR 14 DAYS
     Route: 064

REACTIONS (2)
  - Congenital syphilis [Recovered/Resolved]
  - Foetal exposure during pregnancy [Unknown]
